FAERS Safety Report 6016113-7 (Version None)
Quarter: 2008Q4

REPORT INFORMATION
  Report Type: 
  Country: None (occurrence: None)
  Receive Date: 20081222
  Receipt Date: 20081212
  Transmission Date: 20090506
  Serious: Yes (Other)
  Sender: FDA-Public Use
  Company Number: HQWYE326422JUL04

PATIENT
  Sex: Female

DRUGS (2)
  1. PREMARIN [Suspect]
  2. PROVERA [Suspect]

REACTIONS (16)
  - BLINDNESS [None]
  - BLOOD CHOLESTEROL INCREASED [None]
  - BLOOD PRESSURE INCREASED [None]
  - BREAST CANCER METASTATIC [None]
  - CERVICAL CYST [None]
  - CORNEAL DISORDER [None]
  - ELECTROLYTE IMBALANCE [None]
  - GASTROINTESTINAL DISORDER [None]
  - HOT FLUSH [None]
  - INNER EAR DISORDER [None]
  - ISCHAEMIC STROKE [None]
  - LIPIDS INCREASED [None]
  - METRORRHAGIA [None]
  - MUSCLE SPASMS [None]
  - OSTEOARTHRITIS [None]
  - OSTEOPOROSIS [None]
